FAERS Safety Report 8978034 (Version 1)
Quarter: 2012Q4

REPORT INFORMATION
  Report Type: 
  Country: US (occurrence: US)
  Receive Date: 20121220
  Receipt Date: 20121220
  Transmission Date: 20130627
  Serious: No
  Sender: FDA-Public Use
  Company Number: US-PFIZER INC-2012319930

PATIENT
  Age: 67 Year
  Sex: Male

DRUGS (1)
  1. SUTENT [Suspect]
     Indication: CONNECTIVE TISSUE NEOPLASM
     Dosage: 50 mg, UNK
     Dates: start: 20120807, end: 20121029

REACTIONS (3)
  - Off label use [Unknown]
  - Disease progression [Unknown]
  - Connective tissue neoplasm [Unknown]
